FAERS Safety Report 24539339 (Version 1)
Quarter: 2024Q4

REPORT INFORMATION
  Report Type: Other
  Country: TR (occurrence: TR)
  Receive Date: 20241023
  Receipt Date: 20241023
  Transmission Date: 20250114
  Serious: Yes (Hospitalization, Other)
  Sender: APPCO PHARMA LLC
  Company Number: TR-Appco Pharma LLC-2163620

PATIENT
  Age: 40 Year
  Sex: Male

DRUGS (2)
  1. VENLAFAXINE [Suspect]
     Active Substance: VENLAFAXINE HYDROCHLORIDE
     Indication: Generalised anxiety disorder
  2. QUETIAPINE [Suspect]
     Active Substance: QUETIAPINE

REACTIONS (3)
  - Neuroleptic malignant syndrome [Recovered/Resolved]
  - Treatment noncompliance [Unknown]
  - Withdrawal syndrome [Unknown]
